FAERS Safety Report 4582731-6 (Version None)
Quarter: 2005Q1

REPORT INFORMATION
  Report Type: 
  Country: None (occurrence: None)
  Receive Date: 20050125
  Receipt Date: 20040422
  Transmission Date: 20050727
  Serious: Yes (Hospitalization)
  Sender: FDA-Public Use
  Company Number: PHEH2004US04525

PATIENT
  Age: 61 Year
  Sex: Female

DRUGS (8)
  1. SANDOSTATIN LAR [Suspect]
     Indication: CARCINOID SYNDROME
     Dosage: QMO, INJECTION NOS
     Dates: start: 20020101
  2. PLAVIX [Concomitant]
  3. COLACE (DOCUSATE SODIUM) [Concomitant]
  4. FUROSEMIDE [Concomitant]
  5. VERAPAMIL [Concomitant]
  6. MORPHINE SULFATE [Concomitant]
  7. PROZAC [Concomitant]
  8. MULTIVITAMINS, PLAIN (NO INGREDIENTS/SUBSTANCES) [Concomitant]

REACTIONS (3)
  - HEART VALVE REPLACEMENT [None]
  - LABORATORY TEST ABNORMAL [None]
  - MYOCARDIAL INFARCTION [None]
